FAERS Safety Report 7527102-5 (Version None)
Quarter: 2011Q2

REPORT INFORMATION
  Report Type: 
  Country: None (occurrence: None)
  Receive Date: 20110606
  Receipt Date: 20110524
  Transmission Date: 20111010
  Serious: Yes (Life-Threatening, Hospitalization)
  Sender: FDA-Public Use
  Company Number: IT-MYLANLABS-2011S1010958

PATIENT
  Age: 33 Day
  Sex: Female
  Weight: 5.6 kg

DRUGS (3)
  1. ADENOSINE [Concomitant]
     Indication: SUPRAVENTRICULAR TACHYCARDIA
     Route: 042
  2. PROPRANOLOL [Suspect]
     Indication: SUPRAVENTRICULAR TACHYCARDIA
     Dosage: 2.5MG
     Route: 048
  3. VERAPAMIL [Suspect]
     Indication: SUPRAVENTRICULAR TACHYCARDIA
     Route: 042

REACTIONS (7)
  - METABOLIC ACIDOSIS [None]
  - RENAL FAILURE [None]
  - HYPERKALAEMIA [None]
  - BRADYCARDIA [None]
  - HYPOTENSION [None]
  - CIRCULATORY COLLAPSE [None]
  - LOW CARDIAC OUTPUT SYNDROME [None]
